FAERS Safety Report 5421081-2 (Version None)
Quarter: 2007Q3

REPORT INFORMATION
  Report Type: 
  Country: None (occurrence: None)
  Receive Date: 20070821
  Receipt Date: 20070817
  Transmission Date: 20080115
  Serious: Yes (Death)
  Sender: FDA-Public Use
  Company Number: ZA-GILEAD-2007-0013079

PATIENT
  Sex: Female

DRUGS (3)
  1. TRUVADA [Suspect]
     Route: 048
     Dates: start: 20070714
  2. STOCRIN [Concomitant]
  3. PURBAC [Concomitant]

REACTIONS (1)
  - RENAL FAILURE ACUTE [None]
